FAERS Safety Report 6528345-X (Version None)
Quarter: 2010Q1

REPORT INFORMATION
  Report Type: 
  Country: None (occurrence: None)
  Receive Date: 20100106
  Receipt Date: 20091228
  Transmission Date: 20100710
  Serious: Yes (Disabling, Other)
  Sender: FDA-Public Use
  Company Number: PHHY2009NL47343

PATIENT
  Sex: Male
  Weight: 80 kg

DRUGS (7)
  1. ACLASTA [Suspect]
     Indication: OSTEITIS DEFORMANS
     Dosage: ONCE PER YEAR
     Route: 042
     Dates: start: 20071201
  2. ACLASTA [Suspect]
     Dosage: ONCE PER YEAR
     Route: 042
     Dates: start: 20080101
  3. DICLOFENAC SODIUM [Suspect]
     Dosage: UNK
  4. PARACETAMOL [Concomitant]
     Dosage: 4-6 TIMES PER DAY
  5. TRAMADOL [Concomitant]
     Dosage: UNK
  6. IBUPROFEN [Concomitant]
     Dosage: 800 MG, TWICE DAILY
  7. OMEPRAZOLE [Concomitant]
     Dosage: 20 MG, ONCE DAILY

REACTIONS (6)
  - ACTIVITIES OF DAILY LIVING IMPAIRED [None]
  - ASTHENIA [None]
  - HYPERAESTHESIA [None]
  - MUSCLE DISORDER [None]
  - OEDEMA PERIPHERAL [None]
  - PAIN IN EXTREMITY [None]
